FAERS Safety Report 9450008 (Version 2)
Quarter: 2013Q4

REPORT INFORMATION
  Report Type: Spontaneous
  Country: US (occurrence: US)
  Receive Date: 20130809
  Receipt Date: 20131004
  Transmission Date: 20140711
  Serious: Yes (Hospitalization, Other)
  Sender: FDA-Public Use
  Company Number: US-PFIZER INC-2013231714

PATIENT
  Age: 36 Year
  Sex: Female
  Weight: 82.54 kg

DRUGS (10)
  1. LYRICA [Suspect]
     Indication: FIBROMYALGIA
     Dosage: 75 MG, 2X/DAY
     Route: 048
     Dates: start: 201306, end: 2013
  2. ACETAMINOPHEN W/OXYCODONE [Suspect]
     Indication: PAIN
     Dosage: UNK
  3. PLAQUENIL [Concomitant]
     Indication: SYSTEMIC LUPUS ERYTHEMATOSUS
     Dosage: 200 MG, 2X/DAY
  4. XANAX [Concomitant]
     Dosage: UNK
  5. PROMETHAZINE [Concomitant]
     Dosage: UNK
  6. PERCOCET [Concomitant]
     Dosage: UNK
  7. HYDROCODONE [Concomitant]
     Dosage: 10 MG, UNK
  8. CELEXA [Concomitant]
     Dosage: UNK
  9. HYDROXYCHLOROQUINE [Concomitant]
     Dosage: 200 MG, 2X/DAY
  10. SKELAXIN [Concomitant]
     Indication: MUSCLE DISORDER
     Dosage: 800 MG, 4X/DAY

REACTIONS (8)
  - Neuropathy peripheral [Not Recovered/Not Resolved]
  - Abasia [Not Recovered/Not Resolved]
  - Burning sensation [Not Recovered/Not Resolved]
  - Walking aid user [Not Recovered/Not Resolved]
  - Erythema [Unknown]
  - Pain [Unknown]
  - Drug interaction [Unknown]
  - Drug ineffective [Unknown]
